FAERS Safety Report 8958762 (Version 1)
Quarter: 2012Q4

REPORT INFORMATION
  Report Type: 
  Country: GB (occurrence: GB)
  Receive Date: 20121212
  Receipt Date: 20121212
  Transmission Date: 20130627
  Serious: Yes (Hospitalization, Other)
  Sender: FDA-Public Use
  Company Number: GB-WATSON-2012-21574

PATIENT
  Age: 42 Year
  Sex: Male

DRUGS (3)
  1. SODIUM VALPROATE (UNKNOWN) [Suspect]
     Indication: CONVULSION
     Dosage: 1000 mg, unknown
     Route: 048
  2. CLOZARIL [Suspect]
     Indication: SCHIZOPHRENIA
     Dosage: 300 mg, unknown
     Route: 048
     Dates: start: 20010701
  3. SORAFENIB [Concomitant]
     Indication: PRODUCT USED FOR UNKNOWN INDICATION
     Dosage: UNK, unknown
     Route: 048

REACTIONS (7)
  - Anaemia [Not Recovered/Not Resolved]
  - Haemoglobin decreased [Not Recovered/Not Resolved]
  - Metastases to central nervous system [Unknown]
  - Metastases to kidney [Unknown]
  - Metastases to lung [Unknown]
  - Red blood cell count increased [Unknown]
  - Renal cell carcinoma [Not Recovered/Not Resolved]
